FAERS Safety Report 11889983 (Version 1)
Quarter: 2016Q1

REPORT INFORMATION
  Report Type: Spontaneous
  Country: US (occurrence: US)
  Receive Date: 20160105
  Receipt Date: 20160105
  Transmission Date: 20160526
  Serious: No
  Sender: FDA-Public Use
  Company Number: US-PERRIGO-15US009769

PATIENT
  Age: 85 Year
  Sex: Female

DRUGS (1)
  1. GUAIFENESIN 600 MG 498 [Suspect]
     Active Substance: GUAIFENESIN
     Indication: INCREASED UPPER AIRWAY SECRETION
     Dosage: 1200 MG, QD AT BEDTIME
     Route: 048
     Dates: start: 20111123

REACTIONS (2)
  - Drug ineffective [Unknown]
  - Incorrect drug administration duration [Unknown]

NARRATIVE: CASE EVENT DATE: 20111123
